FAERS Safety Report 8391624-8 (Version None)
Quarter: 2012Q1

REPORT INFORMATION
  Report Type: 
  Country: None (occurrence: None)
  Receive Date: 20120323
  Receipt Date: 20110729
  Transmission Date: 20120608
  Serious: Yes (Other)
  Sender: FDA-Public Use
  Company Number: 163-21880-11023231

PATIENT
  Age: 76 Year
  Sex: Female

DRUGS (18)
  1. DECADRON [Concomitant]
  2. CLARITHROMYCIN [Concomitant]
  3. ACYCLOVIR [Concomitant]
  4. VELCADE [Concomitant]
  5. FLONASE [Concomitant]
  6. GLUCOSAMINE CHONDROITIN (GLUCOSAMINE W/CHONDROITIN SULFATE) [Concomitant]
  7. REVLIMID [Suspect]
     Indication: MULTIPLE MYELOMA
     Dosage: 15 MG, DAYS 1-14, Q 21 D, PO
     Route: 048
     Dates: start: 20101011
  8. ASTELIN [Concomitant]
  9. PEPCID [Concomitant]
  10. PREMARIN [Concomitant]
  11. BENADRYL [Concomitant]
  12. PROCHLORPERAZINE MALEATE (PROCHLORPERAZINE MALEATE) [Concomitant]
  13. NORCO [Concomitant]
  14. PRILOSEC [Concomitant]
  15. ZOMETA [Concomitant]
  16. LEVAQUIN [Concomitant]
  17. LASIX [Concomitant]
  18. POTASSIUM CHLORIDE [Concomitant]

REACTIONS (1)
  - DEEP VEIN THROMBOSIS [None]
